FAERS Safety Report 7780722-5 (Version None)
Quarter: 2011Q3

REPORT INFORMATION
  Report Type: 
  Country: None (occurrence: None)
  Receive Date: 20110927
  Receipt Date: 20110613
  Transmission Date: 20111222
  Serious: Yes (Other)
  Sender: FDA-Public Use
  Company Number: US-BRISTOL-MYERS SQUIBB COMPANY-15751217

PATIENT
  Age: 78 Year
  Sex: Female
  Weight: 79 kg

DRUGS (6)
  1. AVAPRO [Suspect]
     Dosage: INITIAL DOSE 150MG QD INCREASED TO 300MG QD.
  2. ACIPHEX [Concomitant]
  3. PLAVIX [Suspect]
     Indication: TRANSIENT ISCHAEMIC ATTACK
     Dosage: STARTED 6-7 YEARS AGO .
  4. FISH OIL [Concomitant]
  5. VITAMIN D [Concomitant]
  6. CELEBREX [Concomitant]

REACTIONS (4)
  - HYPERTENSION [None]
  - SNEEZING [None]
  - EPISTAXIS [None]
  - HEADACHE [None]
